FAERS Safety Report 5627146-4 (Version None)
Quarter: 2008Q1

REPORT INFORMATION
  Report Type: 
  Country: None (occurrence: None)
  Receive Date: 20080212
  Receipt Date: 20080212
  Transmission Date: 20080703
  Serious: Yes (Other)
  Sender: FDA-Public Use
  Company Number: None

PATIENT
  Sex: Female
  Weight: 52.1637 kg

DRUGS (1)
  1. AZASITE [Suspect]
     Indication: CONJUNCTIVITIS BACTERIAL
     Dosage: 2 GTTS IN EFFECTED EYE BID X 2 DAYS OPHTHALMIC 1 GTT IN EFFECTED EYE DAILY X 5 DAYS OPHTHALMIC
     Route: 047
     Dates: start: 20080208, end: 20080209

REACTIONS (3)
  - EYE DISCHARGE [None]
  - INSTILLATION SITE IRRITATION [None]
  - SKIN IRRITATION [None]
